FAERS Safety Report 6683550-7 (Version None)
Quarter: 2010Q2

REPORT INFORMATION
  Report Type: 
  Country: None (occurrence: None)
  Receive Date: 20100413
  Receipt Date: 20091130
  Transmission Date: 20101027
  Serious: Yes (Hospitalization)
  Sender: FDA-Public Use
  Company Number: 2010-0123

PATIENT
  Age: 76 Year
  Sex: Male
  Weight: 67 kg

DRUGS (3)
  1. APO-GO AMPOULES (APO-GO) (APOMORPHINE HYDROCHLORIDE) (APOMORPHINE HYDR [Suspect]
     Indication: ON AND OFF PHENOMENON
     Dosage: (30 MG,)
     Dates: start: 20090416
  2. AGGRENOX RETARD 200 (ASASANTIN /00580301/) [Concomitant]
  3. SIMVASTATIN [Concomitant]

REACTIONS (2)
  - HYPERTENSION [None]
  - PULMONARY INFARCTION [None]
